FAERS Safety Report 8327996-X (Version None)
Quarter: 2012Q2

REPORT INFORMATION
  Report Type: 
  Country: None (occurrence: None)
  Receive Date: 20120430
  Receipt Date: 20120413
  Transmission Date: 20120825
  Serious: No
  Sender: FDA-Public Use
  Company Number: 216998

PATIENT
  Age: 50 Year
  Sex: Male
  Weight: 55 kg

DRUGS (1)
  1. INNOHEP [Suspect]
     Indication: DIALYSIS
     Dosage: 0, 35 ML

REACTIONS (1)
  - THROMBOSIS IN DEVICE [None]
